FAERS Safety Report 6359759-9 (Version None)
Quarter: 2009Q3

REPORT INFORMATION
  Report Type: 
  Country: None (occurrence: None)
  Receive Date: 20090917
  Receipt Date: 20090907
  Transmission Date: 20100115
  Serious: Yes (Life-Threatening)
  Sender: FDA-Public Use
  Company Number: AT-ELI_LILLY_AND_COMPANY-AT200909001608

PATIENT
  Age: 42 Year
  Sex: Male

DRUGS (2)
  1. ZYPREXA [Suspect]
     Indication: INSOMNIA
     Dosage: 10 MG, DAILY (1/D)
     Dates: start: 20090608, end: 20090626
  2. CITALOPRAM HYDROBROMIDE [Concomitant]
     Indication: DEPRESSION
     Dosage: 20 MG, DAILY (1/D)
     Dates: start: 20090608, end: 20090626

REACTIONS (3)
  - HEPATIC FAILURE [None]
  - HYPERLIPIDAEMIA [None]
  - OFF LABEL USE [None]
